FAERS Safety Report 9118174 (Version 1)
Quarter: 2013Q1

REPORT INFORMATION
  Report Type: Report from Study
  Country: US (occurrence: US)
  Receive Date: 20130129
  Receipt Date: 20130129
  Transmission Date: 20140127
  Serious: No
  Sender: FDA-Public Use
  Company Number: US-ABBOTT-12P-163-0941421-00

PATIENT
  Age: 29 Year
  Sex: Female

DRUGS (4)
  1. HUMIRA 40 MG/0.8 ML PEN [Suspect]
     Indication: PSORIATIC ARTHROPATHY
     Dates: start: 20120402, end: 20120514
  2. METHOTREXATE [Concomitant]
     Indication: PSORIATIC ARTHROPATHY
     Dosage: 2.5MG 8 TABS WEEKLY
  3. NAPROXEN [Concomitant]
     Indication: PAIN
  4. YAZ [Concomitant]
     Indication: CONTRACEPTION
     Dosage: DAILY

REACTIONS (3)
  - Rhinorrhoea [Recovering/Resolving]
  - Sinusitis [Recovering/Resolving]
  - Headache [Recovering/Resolving]
